FAERS Safety Report 8323072-0 (Version None)
Quarter: 2012Q2

REPORT INFORMATION
  Report Type: 
  Country: None (occurrence: None)
  Receive Date: 20120430
  Receipt Date: 20120423
  Transmission Date: 20120825
  Serious: Yes (Hospitalization, Other)
  Sender: FDA-Public Use
  Company Number: US-US-EMD SERONO, INC.-7102267

PATIENT
  Sex: Female

DRUGS (2)
  1. REBIF [Suspect]
     Indication: MULTIPLE SCLEROSIS
     Route: 058
     Dates: start: 20100623, end: 20111201
  2. UNSPECIFIED MEDICATION [Concomitant]
     Indication: CONVULSION

REACTIONS (3)
  - LUNG NEOPLASM MALIGNANT [None]
  - CONVULSION [None]
  - CHRONIC OBSTRUCTIVE PULMONARY DISEASE [None]
